FAERS Safety Report 25808727 (Version 1)
Quarter: 2025Q3

REPORT INFORMATION
  Report Type: Spontaneous
  Country: EU (occurrence: EU)
  Receive Date: 20250916
  Receipt Date: 20250916
  Transmission Date: 20251021
  Serious: Yes (Other)
  Sender: MYLAN
  Company Number: EU-ASPEN-GLO2025FR007673

PATIENT
  Sex: Female

DRUGS (10)
  1. ROPIVACAINE [Suspect]
     Active Substance: ROPIVACAINE
     Indication: Local anaesthesia
  2. BUPIVACAINE [Suspect]
     Active Substance: BUPIVACAINE
     Indication: Local anaesthesia
  3. REMIFENTANIL [Suspect]
     Active Substance: REMIFENTANIL
     Indication: Product used for unknown indication
  4. SUFENTANIL [Suspect]
     Active Substance: SUFENTANIL
     Indication: Adjuvant therapy
  5. CHLOROPROCAINE [Suspect]
     Active Substance: CHLOROPROCAINE
     Indication: Local anaesthesia
  6. MEPIVACAINE HYDROCHLORIDE [Suspect]
     Active Substance: MEPIVACAINE HYDROCHLORIDE
     Indication: Local anaesthesia
  7. CLONIDINE [Suspect]
     Active Substance: CLONIDINE
     Indication: Adjuvant therapy
  8. KETAMINE [Suspect]
     Active Substance: KETAMINE
     Indication: Hypnotherapy
  9. ALFENTANIL [Suspect]
     Active Substance: ALFENTANIL
     Indication: Product used for unknown indication
  10. PHENYLEPHRINE [Suspect]
     Active Substance: PHENYLEPHRINE
     Indication: Product used for unknown indication

REACTIONS (2)
  - Premature delivery [Unknown]
  - Maternal exposure during pregnancy [Unknown]
